FAERS Safety Report 5023318-0 (Version None)
Quarter: 2006Q2

REPORT INFORMATION
  Report Type: 
  Country: None (occurrence: None)
  Receive Date: 20060501
  Receipt Date: 20051228
  Transmission Date: 20061013
  Serious: Yes (Other)
  Sender: FDA-Public Use
  Company Number: US200512004186

PATIENT
  Age: 87 Year
  Sex: Male

DRUGS (4)
  1. CYMBALTA [Suspect]
     Dates: start: 20051203
  2. SYMBYAX [Suspect]
  3. PROVIGIL [Concomitant]
  4. ANTIHYPERTENSIVE AGENT (ANTIHYPERTENSIVE AGENT) [Concomitant]

REACTIONS (3)
  - DYSPNOEA [None]
  - ORTHOSTATIC HYPOTENSION [None]
  - SYNCOPE [None]
